FAERS Safety Report 24056960 (Version 1)
Quarter: 2024Q3

REPORT INFORMATION
  Report Type: Spontaneous
  Country: RO (occurrence: RO)
  Receive Date: 20240706
  Receipt Date: 20240706
  Transmission Date: 20241017
  Serious: Yes (Death, Other)
  Sender: CELLTRION
  Company Number: RO-CELLTRION INC.-2024RO015899

PATIENT

DRUGS (2)
  1. BEVACIZUMAB [Suspect]
     Active Substance: BEVACIZUMAB
     Indication: Hepatic cancer
     Dosage: EVERY 3 WEEKS
     Route: 042
  2. TECENTRIQ [Suspect]
     Active Substance: ATEZOLIZUMAB
     Indication: Hepatic cancer
     Dosage: 1200 MG, EVERY 3 WEEKS
     Route: 042

REACTIONS (3)
  - Oesophageal varices haemorrhage [Fatal]
  - Disease progression [Unknown]
  - Intentional product use issue [Unknown]
